FAERS Safety Report 25880850 (Version 1)
Quarter: 2025Q4

REPORT INFORMATION
  Report Type: Spontaneous
  Country: EU (occurrence: EU)
  Receive Date: 20251004
  Receipt Date: 20251004
  Transmission Date: 20260118
  Serious: Yes (Death, Life-Threatening, Hospitalization, Other)
  Sender: MACLEODS
  Company Number: EU-MACLEODS PHARMA-MAC2023042027

PATIENT

DRUGS (12)
  1. PREGABALIN [Suspect]
     Active Substance: PREGABALIN
     Indication: Product used for unknown indication
     Dosage: UNK UNK, SINGLE
  2. FENTANYL [Suspect]
     Active Substance: FENTANYL
     Indication: Product used for unknown indication
  3. NORFENTANYL [Concomitant]
     Active Substance: NORFENTANYL
     Indication: Product used for unknown indication
     Route: 065
  4. Tetrahydrocannabino [Concomitant]
     Indication: Product used for unknown indication
     Route: 065
  5. CANNABIS SATIVA FLOWERING TOP [Concomitant]
     Active Substance: CANNABIS SATIVA FLOWERING TOP
     Indication: Product used for unknown indication
     Route: 065
  6. 5-FLUORO-ADB, (+/-)- [Concomitant]
     Active Substance: 5-FLUORO-ADB, (+/-)-
     Indication: Product used for unknown indication
     Route: 065
  7. 5F-MDMB-P7AICA [Concomitant]
     Indication: Product used for unknown indication
     Route: 065
  8. DIAZEPAM [Concomitant]
     Active Substance: DIAZEPAM
     Indication: Product used for unknown indication
     Route: 065
  9. TRAMADOL [Concomitant]
     Active Substance: TRAMADOL
     Indication: Product used for unknown indication
     Route: 065
  10. TILIDINE [Concomitant]
     Active Substance: TILIDINE
     Indication: Product used for unknown indication
     Route: 065
  11. METHADONE [Concomitant]
     Active Substance: METHADONE HYDROCHLORIDE
     Indication: Product used for unknown indication
     Route: 065
  12. AMPHETAMINE [Concomitant]
     Active Substance: AMPHETAMINE
     Indication: Product used for unknown indication
     Route: 065

REACTIONS (10)
  - Toxicity to various agents [Fatal]
  - Pulmonary oedema [Fatal]
  - Congestive hepatopathy [Fatal]
  - Hepatomegaly [Fatal]
  - Drug abuse [Fatal]
  - Brain oedema [Fatal]
  - Needle track marks [Fatal]
  - Wrong technique in product usage process [Fatal]
  - Incorrect route of product administration [Fatal]
  - Respiratory depression [Fatal]
